FAERS Safety Report 26214881 (Version 1)
Quarter: 2025Q4

REPORT INFORMATION
  Report Type: Spontaneous
  Country: US (occurrence: US)
  Receive Date: 20251230
  Receipt Date: 20251230
  Transmission Date: 20260117
  Serious: No
  Sender: INSMED
  Company Number: US-INSMED, INC.-2025-05813-US

PATIENT
  Age: 84 Year
  Sex: Female

DRUGS (2)
  1. BRINSUPRI [Suspect]
     Active Substance: BRENSOCATIB
     Indication: Bronchiectasis
     Dosage: 25 MILLIGRAM, QD
     Route: 048
     Dates: end: 2025
  2. BRINSUPRI [Suspect]
     Active Substance: BRENSOCATIB
     Dosage: 10 MILLIGRAM, QD
     Route: 048
     Dates: start: 202510

REACTIONS (1)
  - Somnolence [Not Recovered/Not Resolved]

NARRATIVE: CASE EVENT DATE: 20251001
